FAERS Safety Report 7372623-1 (Version None)
Quarter: 2011Q1

REPORT INFORMATION
  Report Type: 
  Country: None (occurrence: None)
  Receive Date: 20110324
  Receipt Date: 20110318
  Transmission Date: 20110831
  Serious: Yes (Hospitalization)
  Sender: FDA-Public Use
  Company Number: FR-B.I. PHARMACEUTICALS,INC./RIDGEFIELD-2011-FF-00272FF

PATIENT
  Sex: Male

DRUGS (10)
  1. ARCOXIA [Suspect]
     Dosage: 1-2 TABLET DAILY
     Route: 048
     Dates: start: 20101201, end: 20101201
  2. ALGIC [Concomitant]
  3. ARCOXIA [Suspect]
     Indication: ROTATOR CUFF SYNDROME
     Dosage: 1-2 TABLET PER WEEK
     Route: 048
     Dates: start: 20101001, end: 20101201
  4. DIAMICRON [Concomitant]
     Indication: TYPE 2 DIABETES MELLITUS
     Route: 048
  5. MOBIC [Suspect]
  6. ARCOXIA [Suspect]
     Dosage: 1-2 TABLET PER WEEK
     Route: 048
     Dates: start: 20110101, end: 20110101
  7. CELEBREX [Suspect]
     Route: 048
  8. ASPIRIN [Concomitant]
  9. VOLTAREN [Suspect]
  10. ARTOTEC [Suspect]

REACTIONS (2)
  - HAEMATURIA [None]
  - NEPHROTIC SYNDROME [None]
